FAERS Safety Report 15565330 (Version 1)
Quarter: 2018Q4

REPORT INFORMATION
  Report Type: Spontaneous
  Country: JP (occurrence: JP)
  Receive Date: 20181030
  Receipt Date: 20181030
  Transmission Date: 20190205
  Serious: Yes (Death, Other)
  Sender: FDA-Public Use
  Company Number: JP-ASTELLAS-2018US036002

PATIENT
  Age: 70 Year
  Sex: Male

DRUGS (1)
  1. ERLOTINIB [Suspect]
     Active Substance: ERLOTINIB
     Indication: LUNG ADENOCARCINOMA
     Route: 048
     Dates: start: 201802, end: 201803

REACTIONS (2)
  - Interstitial lung disease [Recovered/Resolved with Sequelae]
  - Pneumonia [Fatal]

NARRATIVE: CASE EVENT DATE: 2018
